FAERS Safety Report 5696562-7 (Version None)
Quarter: 2008Q2

REPORT INFORMATION
  Report Type: 
  Country: None (occurrence: None)
  Receive Date: 20080404
  Receipt Date: 20080404
  Transmission Date: 20081010
  Serious: No
  Sender: FDA-Public Use
  Company Number: None

PATIENT
  Sex: Female
  Weight: 52.1637 kg

DRUGS (2)
  1. PROVIGIL [Suspect]
     Indication: NARCOLEPSY
     Dosage: HALF OR 1 TABLET DAILY
  2. PROVIGIL [Suspect]
     Indication: SOMNOLENCE
     Dosage: HALF OR 1 TABLET DAILY

REACTIONS (1)
  - DRY MOUTH [None]
